FAERS Safety Report 7576127-2 (Version None)
Quarter: 2011Q2

REPORT INFORMATION
  Report Type: 
  Country: None (occurrence: None)
  Receive Date: 20110628
  Receipt Date: 20110615
  Transmission Date: 20111010
  Serious: Yes (Other)
  Sender: FDA-Public Use
  Company Number: US-ELI_LILLY_AND_COMPANY-US201104001615

PATIENT
  Sex: Female

DRUGS (9)
  1. VITAMIN D [Concomitant]
     Dosage: 50000 U, WEEKLY (1/W)
  2. ZOLOFT [Concomitant]
     Dosage: 159 MG, UNK
  3. SEROQUEL [Concomitant]
     Dosage: 50 MG, UNK
  4. FORTEO [Suspect]
     Dosage: 20 UG, QD
     Route: 065
  5. ALPRAZOLAM [Concomitant]
     Dosage: 0.5 MG, TID
  6. CRESTOR [Concomitant]
     Dosage: 20 MG, UNK
  7. FORTEO [Suspect]
     Indication: OSTEOPOROSIS
     Dosage: 20 UG, QD
     Route: 065
     Dates: start: 20110318
  8. HYDROCODONE [Concomitant]
     Dosage: 10 MG, BID
  9. ZOLPIDEM [Concomitant]
     Dosage: 10 MG, UNK

REACTIONS (4)
  - CONTUSION [None]
  - SMALL CELL LUNG CANCER STAGE UNSPECIFIED [None]
  - DYSGEUSIA [None]
  - SOMNOLENCE [None]
